FAERS Safety Report 18912557 (Version 1)
Quarter: 2021Q1

REPORT INFORMATION
  Report Type: Spontaneous
  Country: CZ (occurrence: CZ)
  Receive Date: 20210219
  Receipt Date: 20210219
  Transmission Date: 20210420
  Serious: Yes (Other)
  Sender: FDA-Public Use
  Company Number: CZ-ALKEM LABORATORIES LIMITED-CZ-ALKEM-2020-00437

PATIENT
  Sex: Male

DRUGS (5)
  1. MEROPENEM. [Concomitant]
     Active Substance: MEROPENEM
     Indication: PROTEUS INFECTION
     Dosage: UNKNOWN
     Route: 065
     Dates: start: 2018
  2. LINEZOLID. [Suspect]
     Active Substance: LINEZOLID
     Indication: PEPTOSTREPTOCOCCUS INFECTION
     Dosage: UNKNOWN
     Route: 065
     Dates: start: 2018, end: 2018
  3. LINEZOLID. [Suspect]
     Active Substance: LINEZOLID
     Indication: PROTEUS INFECTION
  4. MEROPENEM. [Concomitant]
     Active Substance: MEROPENEM
     Indication: PEPTOSTREPTOCOCCUS INFECTION
  5. FLUCONAZOLE. [Concomitant]
     Active Substance: FLUCONAZOLE
     Indication: ANTIFUNGAL TREATMENT
     Dosage: UNKNOWN
     Route: 065
     Dates: start: 2018

REACTIONS (1)
  - Leukopenia [Unknown]

NARRATIVE: CASE EVENT DATE: 2018
